FAERS Safety Report 5191715-9 (Version None)
Quarter: 2006Q4

REPORT INFORMATION
  Report Type: 
  Country: None (occurrence: None)
  Receive Date: 20061219
  Receipt Date: 20061205
  Transmission Date: 20070319
  Serious: Yes (Other)
  Sender: FDA-Public Use
  Company Number: US-2006-037928

PATIENT
  Age: 36 Year
  Sex: Female
  Weight: 86 kg

DRUGS (1)
  1. MAGNEVIST [Suspect]
     Indication: NUCLEAR MAGNETIC RESONANCE IMAGING
     Dosage: 18 ML, 1 DOSE, INTRAVENOUS
     Route: 042
     Dates: start: 20061202, end: 20061202

REACTIONS (7)
  - CONTRAST MEDIA REACTION [None]
  - DYSPNOEA [None]
  - OXYGEN SATURATION DECREASED [None]
  - POST PROCEDURAL COMPLICATION [None]
  - RESTLESSNESS [None]
  - SNEEZING [None]
  - UPPER RESPIRATORY TRACT CONGESTION [None]
